FAERS Safety Report 6027140-8 (Version None)
Quarter: 2008Q4

REPORT INFORMATION
  Report Type: 
  Country: None (occurrence: None)
  Receive Date: 20081231
  Receipt Date: 20081231
  Transmission Date: 20090506
  Serious: Yes (Hospitalization)
  Sender: FDA-Public Use
  Company Number: None

PATIENT
  Age: 59 Year
  Sex: Female
  Weight: 68.95 kg

DRUGS (1)
  1. VANCOMYCIN [Suspect]
     Indication: SEPSIS
     Dosage: 1GM EVERY 24 HOURS IV
     Route: 042
     Dates: start: 20081126, end: 20081215

REACTIONS (2)
  - DRUG HYPERSENSITIVITY [None]
  - INFUSION RELATED REACTION [None]
